FAERS Safety Report 8598780-7 (Version None)
Quarter: 2012Q3

REPORT INFORMATION
  Report Type: 
  Country: None (occurrence: None)
  Receive Date: 20120816
  Receipt Date: 20120112
  Transmission Date: 20120928
  Serious: Yes (Other)
  Sender: FDA-Public Use
  Company Number: US-ROCHE-1100856

PATIENT
  Sex: Male

DRUGS (5)
  1. HEPARIN [Concomitant]
     Dosage: 1000 UNITS
  2. MORPHINE [Concomitant]
  3. NITROGLYCERIN [Concomitant]
     Route: 060
  4. ACTIVASE [Suspect]
     Indication: MYOCARDIAL INFARCTION
  5. HEPARIN [Concomitant]
     Dosage: 5000 UNITS

REACTIONS (1)
  - BLOOD CREATINE PHOSPHOKINASE INCREASED [None]
